FAERS Safety Report 6550002-4 (Version None)
Quarter: 2010Q1

REPORT INFORMATION
  Report Type: 
  Country: None (occurrence: None)
  Receive Date: 20100119
  Receipt Date: 20100106
  Transmission Date: 20100710
  Serious: Yes (Other)
  Sender: FDA-Public Use
  Company Number: 1000010827

PATIENT
  Age: 37 Year
  Sex: Female

DRUGS (10)
  1. ESCITALOPRAM [Suspect]
     Indication: ANXIETY
     Dosage: 10 MG (10 MG, 1 IN 1 D), ORAL; 20 MG (20 MG, 1 IN 1 D), ORAL
     Route: 048
     Dates: start: 20090730
  2. ESCITALOPRAM [Suspect]
     Indication: DEPRESSION
     Dosage: 10 MG (10 MG, 1 IN 1 D), ORAL; 20 MG (20 MG, 1 IN 1 D), ORAL
     Route: 048
     Dates: start: 20090730
  3. QUETIAPINE FUMARATE [Suspect]
     Indication: DEPRESSION
     Dosage: SEE IMAGE
     Route: 048
     Dates: start: 20091121, end: 20091121
  4. QUETIAPINE FUMARATE [Suspect]
     Indication: DEPRESSION
     Dosage: SEE IMAGE
     Route: 048
     Dates: start: 20091122, end: 20091122
  5. QUETIAPINE FUMARATE [Suspect]
     Indication: DEPRESSION
     Dosage: SEE IMAGE
     Route: 048
     Dates: start: 20091123, end: 20091123
  6. QUETIAPINE FUMARATE [Suspect]
     Indication: DEPRESSION
     Dosage: SEE IMAGE
     Route: 048
     Dates: start: 20091124
  7. WELLBUTRIN [Suspect]
     Dosage: 150 MG (150 MG, 1 IN 1 D), ORAL
     Route: 048
  8. WELLBUTRIN [Suspect]
     Dosage: 300 MG (150 MG, 2 IN 1 D), ORAL
     Route: 048
     Dates: end: 20090101
  9. SLEEPING PILL [Concomitant]
  10. PREMARIN [Concomitant]

REACTIONS (12)
  - APATHY [None]
  - DEPRESSED MOOD [None]
  - DISSOCIATION [None]
  - DIZZINESS [None]
  - DRUG EFFECT DECREASED [None]
  - FATIGUE [None]
  - FEELING HOT [None]
  - HYPERHIDROSIS [None]
  - INSOMNIA [None]
  - SELF-INJURIOUS IDEATION [None]
  - SOMNOLENCE [None]
  - VOMITING [None]
